FAERS Safety Report 23386409 (Version 3)
Quarter: 2024Q1

REPORT INFORMATION
  Report Type: Spontaneous
  Country: US (occurrence: None)
  Receive Date: 20240110
  Receipt Date: 20240216
  Transmission Date: 20240410
  Serious: Yes (Death, Hospitalization)
  Sender: FDA-Public Use
  Company Number: US-ROCHE-3487620

PATIENT
  Age: 57 Year
  Sex: Male
  Weight: 79.904 kg

DRUGS (13)
  1. AVASTIN [Suspect]
     Active Substance: BEVACIZUMAB
     Indication: Choroid melanoma
     Dosage: FREQUENCY-4- 6 WEEKS.
     Route: 050
     Dates: start: 201204, end: 20211221
  2. COUMADIN [Concomitant]
     Active Substance: WARFARIN SODIUM
     Indication: Atrial fibrillation
     Dates: start: 2001
  3. METOPROLOL SUCCINATE [Concomitant]
     Active Substance: METOPROLOL SUCCINATE
     Indication: Hypertension
     Dates: start: 1989
  4. LEVOTHYROXINE [Concomitant]
     Active Substance: LEVOTHYROXINE\LEVOTHYROXINE SODIUM
     Dates: start: 1980
  5. DILAUDID [Concomitant]
     Active Substance: HYDROMORPHONE HYDROCHLORIDE
     Dates: start: 202211
  6. DILAUDID [Concomitant]
     Active Substance: HYDROMORPHONE HYDROCHLORIDE
     Dosage: AS NEEDED FOR BREAKTHROUGH
  7. ATIVAN [Concomitant]
     Active Substance: LORAZEPAM
  8. TYLENOL EXTRA STRENGTH [Concomitant]
     Active Substance: ACETAMINOPHEN
     Indication: Pain
  9. ZOFRAN [Concomitant]
     Active Substance: ONDANSETRON HYDROCHLORIDE
     Dosage: AS NEEDED
  10. VERAPAMIL [Concomitant]
     Active Substance: VERAPAMIL HYDROCHLORIDE
     Indication: Hypertension
     Dates: start: 1980
  11. PROTONIX [Concomitant]
     Active Substance: PANTOPRAZOLE SODIUM
  12. MORPHINE [Concomitant]
     Active Substance: MORPHINE
     Indication: Pain
  13. ELIQUIS [Concomitant]
     Active Substance: APIXABAN
     Dates: start: 1980

REACTIONS (5)
  - Dementia [Fatal]
  - Neoplasm malignant [Fatal]
  - Normal pressure hydrocephalus [Unknown]
  - Off label use [Unknown]
  - Choroid melanoma [Fatal]

NARRATIVE: CASE EVENT DATE: 20120401
